FAERS Safety Report 5105132-0 (Version None)
Quarter: 2006Q3

REPORT INFORMATION
  Report Type: 
  Country: None (occurrence: None)
  Receive Date: 20060911
  Receipt Date: 20060829
  Transmission Date: 20061208
  Serious: Yes (Other)
  Sender: FDA-Public Use
  Company Number: 2006105126

PATIENT
  Age: 36 Year
  Sex: Male
  Weight: 106.5953 kg

DRUGS (2)
  1. NORVASC [Suspect]
     Indication: HYPERTENSION
     Dosage: 12 M G (12 MG, 1 IN 24 HR)
     Dates: start: 20030101
  2. BENICAR [Concomitant]

REACTIONS (2)
  - CHRONIC INFLAMMATORY DEMYELINATING POLYRADICULONEUROPATHY [None]
  - CSF PROTEIN INCREASED [None]
